FAERS Safety Report 17608544 (Version 1)
Quarter: 2020Q1

REPORT INFORMATION
  Report Type: Spontaneous
  Country: None (occurrence: RU)
  Receive Date: 20200331
  Receipt Date: 20200331
  Transmission Date: 20200409
  Serious: Yes (Other)
  Sender: FDA-Public Use
  Company Number: RU-B.BRAUN MEDICAL INC.-2082176

PATIENT
  Age: 83 Year
  Sex: Male
  Weight: 80 kg

DRUGS (12)
  1. DALTEPARIN SODIUM [Concomitant]
     Active Substance: DALTEPARIN SODIUM
     Route: 058
     Dates: start: 20191112
  2. TAMSULOSIN HYDROCHLORIDE. [Concomitant]
     Active Substance: TAMSULOSIN HYDROCHLORIDE
     Route: 048
  3. SPIRONOLACTONE. [Concomitant]
     Active Substance: SPIRONOLACTONE
     Route: 048
     Dates: start: 20191031
  4. SODIUM CHLORIDE. [Concomitant]
     Active Substance: SODIUM CHLORIDE
     Route: 041
     Dates: start: 20191112, end: 20191119
  5. CEFOPERAZONE +[SULBACTAM] [Concomitant]
     Active Substance: CEFOPERAZONE\SULBACTAM
     Route: 041
     Dates: start: 20191031, end: 20191105
  6. POLYMYXIN B. [Suspect]
     Active Substance: POLYMYXIN B
     Route: 041
     Dates: start: 20191112, end: 20191114
  7. IMIPENEM AND CILASTATIN [Concomitant]
     Active Substance: CILASTATIN SODIUM\IMIPENEM
     Route: 041
     Dates: start: 20191106, end: 20191118
  8. OMEPRAZOLE. [Concomitant]
     Active Substance: OMEPRAZOLE
     Route: 048
     Dates: start: 20191112, end: 20191125
  9. KETOROLAC [Concomitant]
     Active Substance: KETOROLAC TROMETHAMINE
     Route: 030
     Dates: start: 20191029, end: 20191104
  10. DEXTROSE INJECTIONS USP 0264-7510-00 0264-7510-20 [Suspect]
     Active Substance: DEXTROSE
     Indication: PRODUCT USED FOR UNKNOWN INDICATION
     Route: 041
     Dates: start: 20191112, end: 20191114
  11. AMIKACIN SULFATE. [Concomitant]
     Active Substance: AMIKACIN SULFATE
     Route: 041
     Dates: start: 20191105, end: 20191112
  12. FUROSEMIDE. [Concomitant]
     Active Substance: FUROSEMIDE
     Route: 050
     Dates: start: 20191110

REACTIONS (2)
  - Rash [Recovered/Resolved]
  - Burning sensation [Recovered/Resolved]

NARRATIVE: CASE EVENT DATE: 20191112
